FAERS Safety Report 4993254-4 (Version None)
Quarter: 2006Q1

REPORT INFORMATION
  Report Type: 
  Country: None (occurrence: None)
  Receive Date: 20060314
  Receipt Date: 20050328
  Transmission Date: 20060701
  Serious: Yes (Other)
  Sender: FDA-Public Use
  Company Number: 200511273BCC

PATIENT
  Age: 84 Year
  Sex: Female
  Weight: 53.978 kg

DRUGS (5)
  1. ALEVE [Suspect]
     Indication: ARTHRITIS
     Dosage: 220 MG, QD, ORAL
     Route: 048
     Dates: start: 20050323, end: 20050325
  2. COUMADIN [Concomitant]
  3. ATENOLOL [Concomitant]
  4. TIMOPTIC-XE [Concomitant]
  5. MIRALAX [Concomitant]

REACTIONS (1)
  - HAEMATOCHEZIA [None]
